FAERS Safety Report 26180075 (Version 3)
Quarter: 2025Q4

REPORT INFORMATION
  Report Type: Report from Study
  Country: BR (occurrence: BR)
  Receive Date: 20251219
  Receipt Date: 20251231
  Transmission Date: 20260118
  Serious: Yes (Hospitalization)
  Sender: JOHNSON AND JOHNSON
  Company Number: BR-JNJFOC-20251206532

PATIENT
  Age: 46 Year
  Sex: Female
  Weight: 76 kg

DRUGS (5)
  1. TALVEY [Suspect]
     Active Substance: TALQUETAMAB-TGVS
     Indication: Plasma cell myeloma
     Dosage: 1ST DOSE
     Route: 058
  2. TALVEY [Suspect]
     Active Substance: TALQUETAMAB-TGVS
     Dosage: 2ND DOSE
     Route: 058
  3. TALVEY [Suspect]
     Active Substance: TALQUETAMAB-TGVS
     Dosage: 3RD DOSE
     Route: 058
  4. TALVEY [Suspect]
     Active Substance: TALQUETAMAB-TGVS
     Dosage: 4TH DOSE
     Route: 058
  5. TALVEY [Suspect]
     Active Substance: TALQUETAMAB-TGVS
     Route: 058
     Dates: start: 20251222, end: 20251222

REACTIONS (14)
  - Plasma cell myeloma [Unknown]
  - Bone pain [Not Recovered/Not Resolved]
  - Malaise [Unknown]
  - Pyrexia [Unknown]
  - Stomatitis [Unknown]
  - Tachycardia [Unknown]
  - Oxygen saturation abnormal [Unknown]
  - Fatigue [Unknown]
  - SARS-CoV-2 test positive [Unknown]
  - Blood alkaline phosphatase abnormal [Unknown]
  - Skin disorder [Unknown]
  - Nail disorder [Unknown]
  - Taste disorder [Unknown]
  - Dry skin [Unknown]
